FAERS Safety Report 8058661-4 (Version None)
Quarter: 2012Q1

REPORT INFORMATION
  Report Type: 
  Country: None (occurrence: None)
  Receive Date: 20120119
  Receipt Date: 20120119
  Transmission Date: 20120608
  Serious: Yes (Hospitalization)
  Sender: FDA-Public Use
  Company Number: None

PATIENT
  Age: 60 Year
  Sex: Female
  Weight: 95.6 kg

DRUGS (20)
  1. ALBUTEROL [Concomitant]
  2. SPIRIVA [Concomitant]
  3. DILAUDID [Suspect]
     Dosage: 8MG Q6HR PRN PAIN PO CHRONIC
     Route: 048
  4. FENTANYL [Concomitant]
  5. AMLODIPINE [Concomitant]
  6. CYMBALTA [Concomitant]
  7. TRAZODONE HCL [Suspect]
     Dosage: 300MG QHS PO CHRONIC
     Route: 048
  8. OXYCODONE HCL AND ACETAMINOPHEN [Suspect]
     Dosage: 10/325 PO TID PRN CHRONIC
     Route: 048
  9. DEPAKOTE ER [Suspect]
     Dosage: 500MG P QHS CHRONIC
  10. ZANAFLEX [Concomitant]
  11. HUMALIN [Concomitant]
  12. OMEPRAZOLE [Concomitant]
  13. PRAVASTATIN [Concomitant]
  14. AMBIEN [Concomitant]
  15. ADVAIR DISKUS 100/50 [Concomitant]
  16. NICOTINE [Concomitant]
  17. METFORMIN HCL [Concomitant]
  18. NEURONTIN [Concomitant]
  19. VESICARE [Concomitant]
  20. VENTOLIN [Concomitant]

REACTIONS (4)
  - CONFUSIONAL STATE [None]
  - MENTAL STATUS CHANGES [None]
  - INCORRECT DOSE ADMINISTERED [None]
  - HYPERAMMONAEMIA [None]
